FAERS Safety Report 7334272-0 (Version None)
Quarter: 2011Q1

REPORT INFORMATION
  Report Type: 
  Country: None (occurrence: None)
  Receive Date: 20110307
  Receipt Date: 20110222
  Transmission Date: 20110831
  Serious: Yes (Hospitalization)
  Sender: FDA-Public Use
  Company Number: US-BAYER-2011-020102

PATIENT
  Sex: Female
  Weight: 97.959 kg

DRUGS (10)
  1. YAZ [Suspect]
     Indication: MENSTRUAL DISORDER
     Dosage: UNK
     Dates: start: 20060425, end: 20061001
  2. PREVACID NAPRAPAC 250 (COPACKAGED) [Concomitant]
     Dosage: 1 DF, BID
     Route: 048
     Dates: start: 20060725
  3. MOTRIN [Concomitant]
     Indication: DYSMENORRHOEA
     Dosage: 800 MG, TID
     Route: 048
     Dates: start: 20051229
  4. SCOPOLAMINE [Concomitant]
     Indication: NAUSEA
     Dosage: UNK
     Dates: start: 20060910
  5. NASONEX [Concomitant]
     Indication: MULTIPLE ALLERGIES
     Route: 045
  6. HISTATAB PLUS [Concomitant]
     Indication: MULTIPLE ALLERGIES
     Dosage: 1 DF, BID
     Route: 048
  7. NITROFURANTOIN [Concomitant]
     Indication: URINARY TRACT INFECTION
     Dosage: 100 MG, QD
     Route: 048
     Dates: start: 20060831
  8. LEVAQUIN [Concomitant]
     Route: 048
  9. AMOXICILLIN [Concomitant]
     Indication: URINARY TRACT INFECTION
     Dosage: 2 DF, BID
     Route: 048
     Dates: start: 20060901
  10. CELEBREX [Concomitant]
     Dosage: 200 MG, QD
     Route: 048
     Dates: start: 20060710

REACTIONS (10)
  - PULMONARY EMBOLISM [None]
  - VEIN DISORDER [None]
  - BACK PAIN [None]
  - ABDOMINAL PAIN [None]
  - URINARY TRACT INFECTION [None]
  - PAIN IN EXTREMITY [None]
  - PAINFUL RESPIRATION [None]
  - OEDEMA PERIPHERAL [None]
  - DEEP VEIN THROMBOSIS [None]
  - FLANK PAIN [None]
